FAERS Safety Report 6645983-4 (Version None)
Quarter: 2010Q1

REPORT INFORMATION
  Report Type: 
  Country: None (occurrence: None)
  Receive Date: 20100318
  Receipt Date: 20100302
  Transmission Date: 20100710
  Serious: Yes (Hospitalization, Other)
  Sender: FDA-Public Use
  Company Number: DSA_33797_2009

PATIENT
  Sex: Female

DRUGS (7)
  1. ATIVAN [Suspect]
     Indication: AUTONOMIC NERVOUS SYSTEM IMBALANCE
     Dosage: (0.5 MG TID) ; (DF) ; (DF) ; (0.5 MG 1X/8 HOURS ORAL) ; (0.5 MG 1X/8 HOURS ORAL)
     Route: 048
     Dates: start: 19890101
  2. ATIVAN [Suspect]
     Indication: AUTONOMIC NERVOUS SYSTEM IMBALANCE
     Dosage: (0.5 MG TID) ; (DF) ; (DF) ; (0.5 MG 1X/8 HOURS ORAL) ; (0.5 MG 1X/8 HOURS ORAL)
     Route: 048
     Dates: start: 20090101
  3. ATIVAN [Suspect]
     Indication: AUTONOMIC NERVOUS SYSTEM IMBALANCE
     Dosage: (0.5 MG TID) ; (DF) ; (DF) ; (0.5 MG 1X/8 HOURS ORAL) ; (0.5 MG 1X/8 HOURS ORAL)
     Route: 048
     Dates: start: 20100129
  4. ATIVAN [Suspect]
     Indication: AUTONOMIC NERVOUS SYSTEM IMBALANCE
     Dosage: (0.5 MG TID) ; (DF) ; (DF) ; (0.5 MG 1X/8 HOURS ORAL) ; (0.5 MG 1X/8 HOURS ORAL)
     Route: 048
     Dates: start: 20100301
  5. LORAZEPAM [Suspect]
     Indication: AUTONOMIC NERVOUS SYSTEM IMBALANCE
     Dosage: (0.5 MG TID)
     Dates: end: 20070101
  6. DILAUDID [Suspect]
     Indication: DRUG USE FOR UNKNOWN INDICATION
     Dosage: (DF)
  7. VITAMIN B-12 [Concomitant]

REACTIONS (18)
  - ABDOMINAL PAIN UPPER [None]
  - ASTHMA [None]
  - CARDIAC ARREST [None]
  - CHOKING [None]
  - CONDITION AGGRAVATED [None]
  - DISORIENTATION [None]
  - DRUG WITHDRAWAL SYNDROME [None]
  - DYSPHAGIA [None]
  - GASTROINTESTINAL DISORDER [None]
  - MUCOUS MEMBRANE DISORDER [None]
  - NIGHTMARE [None]
  - ORAL PAIN [None]
  - PAIN [None]
  - PRODUCT SUBSTITUTION ISSUE [None]
  - RASH [None]
  - REACTION TO DRUG EXCIPIENTS [None]
  - UNEVALUABLE EVENT [None]
  - URINARY TRACT INFECTION [None]
